FAERS Safety Report 5115627-1 (Version None)
Quarter: 2006Q3

REPORT INFORMATION
  Report Type: 
  Country: None (occurrence: None)
  Receive Date: 20060927
  Receipt Date: 20060724
  Transmission Date: 20061208
  Serious: Yes (Hospitalization)
  Sender: FDA-Public Use
  Company Number: DE-BAYER-200610962BVD

PATIENT
  Age: 66 Year
  Sex: Male
  Weight: 76 kg

DRUGS (9)
  1. SORAFENIB [Suspect]
     Indication: RENAL CELL CARCINOMA STAGE UNSPECIFIED
     Route: 048
     Dates: start: 20051221
  2. SORAFENIB [Suspect]
     Dosage: TOTAL DAILY DOSE: 800 MG  UNIT DOSE: 400 MG
     Route: 048
     Dates: start: 20060717
  3. ALLOPURINOL [Concomitant]
     Indication: GOUT
     Route: 065
     Dates: start: 19850101
  4. ZOMETA [Concomitant]
     Indication: METASTASES TO BONE
     Route: 065
     Dates: start: 20040101
  5. TRYASOL [Concomitant]
     Indication: COUGH
     Route: 065
  6. METOPROLOL [Concomitant]
     Indication: HYPERTENSION
     Route: 065
     Dates: start: 20060118
  7. LOPERAMID [Concomitant]
     Indication: DIARRHOEA
     Route: 065
     Dates: start: 20060421
  8. PANTOZOL [Concomitant]
     Indication: PROPHYLAXIS AGAINST GASTROINTESTINAL ULCER
     Route: 048
     Dates: start: 20060718
  9. CEFUROXIME [Concomitant]
     Indication: INFECTION PROPHYLAXIS
     Dosage: AS USED: 500 MG
     Route: 048
     Dates: start: 20060701, end: 20060731

REACTIONS (3)
  - CHOLECYSTITIS [None]
  - CHOLELITHIASIS [None]
  - PANCREATITIS [None]
